FAERS Safety Report 9206099 (Version 1)
Quarter: 2013Q1

REPORT INFORMATION
  Report Type: Spontaneous
  Country: US (occurrence: None)
  Receive Date: 20120731
  Receipt Date: 20120731
  Transmission Date: 20140127
  Serious: Yes (Other)
  Sender: FDA-Public Use
  Company Number: US201206005653

PATIENT
  Sex: Female

DRUGS (2)
  1. BYDUREON [Suspect]
     Route: 058
  2. BACTROBAN/NET/(MUPIROCIN CALCIUM) [Concomitant]

REACTIONS (1)
  - Renal failure chronic [None]
